FAERS Safety Report 13232248 (Version 1)
Quarter: 2017Q1

REPORT INFORMATION
  Report Type: Spontaneous
  Country: FR (occurrence: FR)
  Receive Date: 20170214
  Receipt Date: 20170214
  Transmission Date: 20170428
  Serious: Yes (Other)
  Sender: FDA-Public Use
  Company Number: FR-PURDUE PHARMA-CAN-2017-0007454

PATIENT
  Age: 32 Year
  Sex: Male

DRUGS (1)
  1. NON-PMN METHYLPHENIDATE HYDROCHLORIDE [Suspect]
     Active Substance: METHYLPHENIDATE HYDROCHLORIDE
     Indication: PRODUCT USED FOR UNKNOWN INDICATION
     Dosage: UNK
     Route: 042

REACTIONS (5)
  - Mental disorder [Recovered/Resolved]
  - Delirium [Recovered/Resolved]
  - Drug abuse [Unknown]
  - Abnormal behaviour [Recovered/Resolved]
  - Restlessness [Recovered/Resolved]
